FAERS Safety Report 10056066 (Version 1)
Quarter: 2014Q2

REPORT INFORMATION
  Report Type: Spontaneous
  Country: US (occurrence: None)
  Receive Date: 20140402
  Receipt Date: 20140402
  Transmission Date: 20141212
  Serious: Yes (Other)
  Sender: FDA-Public Use
  Company Number: None

PATIENT
  Age: 86 Year
  Sex: Male

DRUGS (1)
  1. XTANDI 40MG [Suspect]
     Indication: PROSTATE CANCER
     Route: 048
     Dates: start: 20131228, end: 20140207

REACTIONS (7)
  - Back pain [None]
  - Insomnia [None]
  - Muscular weakness [None]
  - Decreased appetite [None]
  - Nausea [None]
  - Diarrhoea [None]
  - Abdominal pain upper [None]
